FAERS Safety Report 7749117-4 (Version None)
Quarter: 2011Q3

REPORT INFORMATION
  Report Type: 
  Country: None (occurrence: None)
  Receive Date: 20110914
  Receipt Date: 20110907
  Transmission Date: 20111222
  Serious: No
  Sender: FDA-Public Use
  Company Number: US-PFIZER INC-2011210551

PATIENT
  Sex: Male
  Weight: 79.4 kg

DRUGS (1)
  1. SUTENT [Suspect]
     Dosage: 25 MG, 1 CAPSULE EVERYDAY
     Route: 048
     Dates: start: 20110826

REACTIONS (1)
  - HYPERTENSION [None]
